FAERS Safety Report 5738142-0 (Version None)
Quarter: 2008Q2

REPORT INFORMATION
  Report Type: 
  Country: None (occurrence: None)
  Receive Date: 20080514
  Receipt Date: 20080422
  Transmission Date: 20081010
  Serious: Yes (Life-Threatening, Hospitalization, Other)
  Sender: FDA-Public Use
  Company Number: DE-GILEAD-2008-0016175

PATIENT
  Sex: Male
  Weight: 49 kg

DRUGS (1)
  1. TRUVADA [Suspect]
     Route: 048
     Dates: start: 20050830, end: 20080121

REACTIONS (2)
  - ARTHRALGIA [None]
  - FATIGUE [None]
